FAERS Safety Report 6017382-X (Version None)
Quarter: 2008Q4

REPORT INFORMATION
  Report Type: 
  Country: None (occurrence: None)
  Receive Date: 20081223
  Receipt Date: 20081212
  Transmission Date: 20090506
  Serious: Yes (Other)
  Sender: FDA-Public Use
  Company Number: PHHY2008DE31956

PATIENT
  Age: 77 Year
  Sex: Female

DRUGS (5)
  1. LOCOL / XU [Suspect]
     Indication: HYPERCHOLESTEROLAEMIA
     Dosage: 40 MG/DAY
     Route: 048
     Dates: start: 20070501, end: 20070101
  2. LOCOL / XU [Suspect]
     Dosage: 80 MG/DAY
     Route: 048
     Dates: start: 20070101
  3. LORZAAR PLUS [Concomitant]
     Indication: HYPERTENSION
  4. LORZAAR [Concomitant]
     Indication: HYPERTENSION
  5. ASPIRIN 100 PROTECT [Concomitant]

REACTIONS (3)
  - CARPAL TUNNEL SYNDROME [None]
  - MYALGIA [None]
  - OEDEMA PERIPHERAL [None]
